FAERS Safety Report 5055201-9 (Version None)
Quarter: 2006Q3

REPORT INFORMATION
  Report Type: 
  Country: None (occurrence: None)
  Receive Date: 20060714
  Receipt Date: 20060630
  Transmission Date: 20061208
  Serious: Yes (Other)
  Sender: FDA-Public Use
  Company Number: HQWYE726310APR06

PATIENT
  Age: 51 Year
  Sex: Female

DRUGS (3)
  1. PANTOPRAZOLE SODIUM [Suspect]
     Dosage: 20 MG 1X PER 1 DAY ORAL
     Route: 048
  2. HYDROXYCHLOROQUINE SULFATE [Concomitant]
  3. DICLOFENAC (DICLOFENAC) [Concomitant]

REACTIONS (1)
  - TORTICOLLIS [None]
